FAERS Safety Report 6896463-2 (Version None)
Quarter: 2010Q3

REPORT INFORMATION
  Report Type: 
  Country: None (occurrence: None)
  Receive Date: 20100802
  Receipt Date: 20090227
  Transmission Date: 20110219
  Serious: No
  Sender: FDA-Public Use
  Company Number: US-PFIZER INC-2009153091

PATIENT
  Sex: Male

DRUGS (3)
  1. AZULFIDINE [Suspect]
     Dosage: UNK
  2. OLSALAZINE SODIUM [Suspect]
     Dosage: UNK
  3. ASACOL [Suspect]
     Dosage: UNK

REACTIONS (1)
  - DIARRHOEA [None]
